FAERS Safety Report 20596335 (Version 1)
Quarter: 2022Q1

REPORT INFORMATION
  Report Type: Spontaneous
  Country: US (occurrence: None)
  Receive Date: 20220315
  Receipt Date: 20220315
  Transmission Date: 20220423
  Serious: Yes (Disabling, Other)
  Sender: FDA-Public Use
  Company Number: None

PATIENT
  Age: 79 Year
  Sex: Female
  Weight: 59.85 kg

DRUGS (5)
  1. AZITHROMYCIN [Suspect]
     Active Substance: AZITHROMYCIN
     Indication: Bronchitis
     Dosage: OTHER FREQUENCY : 1 DAILY X 4 DAYS;?
     Route: 048
     Dates: start: 20220309, end: 20220309
  2. SINGULAIR [Concomitant]
     Active Substance: MONTELUKAST SODIUM
  3. ZYRTEC [Concomitant]
     Active Substance: CETIRIZINE HYDROCHLORIDE
  4. ALBUTEROL [Concomitant]
     Active Substance: ALBUTEROL
  5. advait [Concomitant]

REACTIONS (10)
  - Gastrointestinal pain [None]
  - Hyperaesthesia [None]
  - Vomiting [None]
  - Abnormal faeces [None]
  - Diarrhoea [None]
  - Weight decreased [None]
  - Product substitution issue [None]
  - Hypersensitivity [None]
  - Abdominal pain [None]
  - Anal incontinence [None]
